FAERS Safety Report 20697638 (Version 1)
Quarter: 2022Q2

REPORT INFORMATION
  Report Type: Spontaneous
  Country: US (occurrence: US)
  Receive Date: 20220411
  Receipt Date: 20220411
  Transmission Date: 20220721
  Serious: No
  Sender: FDA-Public Use
  Company Number: US-Blueprint Medicines Corporation-SP-US-2022-000851

PATIENT
  Sex: Female

DRUGS (1)
  1. AYVAKIT [Suspect]
     Active Substance: AVAPRITINIB
     Indication: Systemic mastocytosis
     Route: 048
     Dates: start: 20211011

REACTIONS (5)
  - Blood potassium decreased [Unknown]
  - Asthenia [Unknown]
  - Product dose omission in error [Unknown]
  - COVID-19 [Unknown]
  - Gastroenteritis viral [Unknown]
